FAERS Safety Report 6809852-9 (Version None)
Quarter: 2010Q2

REPORT INFORMATION
  Report Type: 
  Country: None (occurrence: None)
  Receive Date: 20100625
  Receipt Date: 20100609
  Transmission Date: 20101027
  Serious: Yes (Hospitalization)
  Sender: FDA-Public Use
  Company Number: DSA_43339_2010

PATIENT
  Age: 32 Year
  Sex: Male

DRUGS (5)
  1. DILTIAZEM [Suspect]
     Indication: DRESSLER'S SYNDROME
     Dosage: (90 MG BID ORAL)
     Route: 048
     Dates: start: 20100512, end: 20100526
  2. ASPIRIN [Concomitant]
  3. BISOPROLOL [Concomitant]
  4. CLOPIDOGREL [Concomitant]
  5. RAMIPRIL [Concomitant]

REACTIONS (4)
  - NEUTROPENIA [None]
  - PRURITUS [None]
  - PYREXIA [None]
  - RASH GENERALISED [None]
